FAERS Safety Report 11005673 (Version 1)
Quarter: 2015Q2

REPORT INFORMATION
  Report Type: Spontaneous
  Country: US (occurrence: US)
  Receive Date: 20150409
  Receipt Date: 20150409
  Transmission Date: 20150821
  Serious: No
  Sender: FDA-Public Use
  Company Number: US-ALLERGAN-1408940US

PATIENT
  Age: 81 Year
  Sex: Female

DRUGS (1)
  1. LUMIGAN [Suspect]
     Active Substance: BIMATOPROST
     Indication: EYE DISORDER
     Dosage: 2 GTT, QHS
     Route: 047

REACTIONS (3)
  - Eyelid oedema [Unknown]
  - Accidental exposure to product [Unknown]
  - Erythema of eyelid [Unknown]
